FAERS Safety Report 5071995-0 (Version None)
Quarter: 2006Q3

REPORT INFORMATION
  Report Type: 
  Country: None (occurrence: None)
  Receive Date: 20060801
  Receipt Date: 20060719
  Transmission Date: 20061208
  Serious: Yes (Other)
  Sender: FDA-Public Use
  Company Number: 2902

PATIENT

DRUGS (1)
  1. AMNESTEEM [Suspect]
     Dates: start: 20060109, end: 20060222

REACTIONS (1)
  - DISEASE PROGRESSION [None]
